FAERS Safety Report 7728602-5 (Version None)
Quarter: 2011Q3

REPORT INFORMATION
  Report Type: 
  Country: None (occurrence: None)
  Receive Date: 20110831
  Receipt Date: 20110831
  Transmission Date: 20111222
  Serious: Yes (Hospitalization)
  Sender: FDA-Public Use
  Company Number: None

PATIENT
  Sex: Male
  Weight: 99.7913 kg

DRUGS (3)
  1. GEMCITABINE [Suspect]
     Indication: PANCREATIC CARCINOMA
     Dosage: 640 MG/M2
     Dates: start: 20110208, end: 20110405
  2. OXALIPLATIN [Suspect]
     Indication: PANCREATIC CARCINOMA
     Dosage: 65 MG/M2
     Dates: start: 20110207, end: 20110406
  3. ERLOTINIB HYDROCHLORIDE [Concomitant]

REACTIONS (5)
  - TACHYCARDIA [None]
  - UPPER GASTROINTESTINAL HAEMORRHAGE [None]
  - PANCREATIC CARCINOMA METASTATIC [None]
  - DUODENAL STENOSIS [None]
  - NEOPLASM PROGRESSION [None]
